FAERS Safety Report 5736482-2 (Version None)
Quarter: 2008Q2

REPORT INFORMATION
  Report Type: 
  Country: None (occurrence: None)
  Receive Date: 20080509
  Receipt Date: 20080509
  Transmission Date: 20081010
  Serious: Yes (Life-Threatening)
  Sender: FDA-Public Use
  Company Number: None

PATIENT
  Age: 58 Year
  Sex: Male
  Weight: 113.3993 kg

DRUGS (1)
  1. DIGITEK TABS  .25MG  B146  AMIDE -BERTEK- [Suspect]
     Indication: ATRIAL FLUTTER
     Dosage: .25MG ONE PER DAY PO
     Route: 048
     Dates: start: 20051110, end: 20080501

REACTIONS (9)
  - ASTHENIA [None]
  - ATRIAL FLUTTER [None]
  - BRADYCARDIA [None]
  - CONFUSIONAL STATE [None]
  - FATIGUE [None]
  - HEART RATE IRREGULAR [None]
  - HYPOTENSION [None]
  - LIBIDO DECREASED [None]
  - NAUSEA [None]
